FAERS Safety Report 6156537-0 (Version None)
Quarter: 2009Q2

REPORT INFORMATION
  Report Type: 
  Country: None (occurrence: None)
  Receive Date: 20090416
  Receipt Date: 20090406
  Transmission Date: 20091009
  Serious: Yes (Other)
  Sender: FDA-Public Use
  Company Number: DE-TEVA-190448ISR

PATIENT
  Age: 42 Year
  Sex: Male

DRUGS (5)
  1. CEFTRIAXONE [Suspect]
  2. COTRIMOXAZOLE [Suspect]
  3. DOXYCYCLINE [Suspect]
  4. HYDROXYCHLOROQUINE SULFATE [Suspect]
  5. STREPTOMYCIN [Suspect]

REACTIONS (1)
  - IMMUNE RECONSTITUTION SYNDROME [None]
